FAERS Safety Report 24222019 (Version 1)
Quarter: 2024Q3

REPORT INFORMATION
  Report Type: Report from Study
  Country: CA (occurrence: CA)
  Receive Date: 20240819
  Receipt Date: 20240819
  Transmission Date: 20241016
  Serious: Yes (Hospitalization)
  Sender: MYLAN
  Company Number: CA-MYLANLABS-2024M1075999

PATIENT
  Sex: Male

DRUGS (1)
  1. CLOZAPINE [Suspect]
     Active Substance: CLOZAPINE
     Indication: Product used for unknown indication
     Dosage: UNK (ON OR ABOUT 14-MAY-2024)
     Route: 065
     Dates: start: 200905, end: 20240728

REACTIONS (3)
  - Hospitalisation [Unknown]
  - C-reactive protein increased [Unknown]
  - Troponin increased [Unknown]
